FAERS Safety Report 21248207 (Version 1)
Quarter: 2022Q3

REPORT INFORMATION
  Report Type: Spontaneous
  Country: TW (occurrence: None)
  Receive Date: 20220824
  Receipt Date: 20220824
  Transmission Date: 20221027
  Serious: Yes (Hospitalization, Other)
  Sender: FDA-Public Use
  Company Number: TW-ROCHE-3163708

PATIENT
  Age: 65 Year
  Sex: Male

DRUGS (16)
  1. AVASTIN [Suspect]
     Active Substance: BEVACIZUMAB
     Indication: Colorectal cancer metastatic
     Route: 065
     Dates: start: 202012, end: 202104
  2. LEUCOVORIN [Concomitant]
     Active Substance: LEUCOVORIN
     Indication: Colorectal cancer metastatic
     Dates: start: 202012, end: 202104
  3. LEUCOVORIN [Concomitant]
     Active Substance: LEUCOVORIN
     Dates: start: 202105, end: 202111
  4. LEUCOVORIN [Concomitant]
     Active Substance: LEUCOVORIN
     Dates: start: 202112, end: 202203
  5. FLUOROURACIL [Concomitant]
     Active Substance: FLUOROURACIL
     Indication: Colorectal cancer metastatic
     Dates: start: 202012, end: 202104
  6. FLUOROURACIL [Concomitant]
     Active Substance: FLUOROURACIL
     Dates: start: 202105, end: 202111
  7. FLUOROURACIL [Concomitant]
     Active Substance: FLUOROURACIL
     Dates: start: 202111, end: 202112
  8. FLUOROURACIL [Concomitant]
     Active Substance: FLUOROURACIL
     Dates: start: 202112, end: 202203
  9. IRINOTECAN [Concomitant]
     Active Substance: IRINOTECAN
     Indication: Colorectal cancer metastatic
     Dates: start: 202012, end: 202104
  10. IRINOTECAN [Concomitant]
     Active Substance: IRINOTECAN
     Dates: start: 202105, end: 202111
  11. IRINOTECAN [Concomitant]
     Active Substance: IRINOTECAN
     Dates: start: 202112, end: 202203
  12. CETUXIMAB [Concomitant]
     Active Substance: CETUXIMAB
     Indication: Colorectal cancer metastatic
     Dates: start: 202105, end: 202111
  13. CISPLATIN [Concomitant]
     Active Substance: CISPLATIN
     Indication: Colorectal cancer metastatic
     Dates: start: 202111, end: 202112
  14. RAMUCIRUMAB [Concomitant]
     Active Substance: RAMUCIRUMAB
     Indication: Colorectal cancer metastatic
     Dates: start: 202112, end: 202203
  15. NIVOLUMAB [Concomitant]
     Active Substance: NIVOLUMAB
     Indication: Colorectal cancer metastatic
     Dates: start: 202203, end: 202203
  16. REGORAFENIB [Concomitant]
     Active Substance: REGORAFENIB
     Indication: Colorectal cancer metastatic
     Dates: start: 202203, end: 202203

REACTIONS (3)
  - Disease progression [Unknown]
  - Chromaturia [Unknown]
  - Blood sodium decreased [Unknown]

NARRATIVE: CASE EVENT DATE: 20210401
